FAERS Safety Report 5292518-7 (Version None)
Quarter: 2007Q2

REPORT INFORMATION
  Report Type: 
  Country: None (occurrence: None)
  Receive Date: 20070410
  Receipt Date: 20070329
  Transmission Date: 20071010
  Serious: Yes (Other)
  Sender: FDA-Public Use
  Company Number: NL-PFIZER INC-2007026244

PATIENT
  Age: 51 Year
  Sex: Female
  Weight: 74 kg

DRUGS (4)
  1. LYRICA [Suspect]
     Indication: NEUROPATHY PERIPHERAL
     Route: 048
  2. TEMAZEPAM [Concomitant]
  3. NASACORT [Concomitant]
  4. VENTOLIN [Concomitant]
     Route: 055

REACTIONS (8)
  - CLUMSINESS [None]
  - CONTUSION [None]
  - DISTURBANCE IN ATTENTION [None]
  - INSOMNIA [None]
  - MUSCLE RUPTURE [None]
  - MUSCULAR WEAKNESS [None]
  - NIGHT SWEATS [None]
  - OEDEMA PERIPHERAL [None]
